FAERS Safety Report 25191955 (Version 3)
Quarter: 2025Q2

REPORT INFORMATION
  Report Type: Spontaneous
  Country: HR (occurrence: HR)
  Receive Date: 20250414
  Receipt Date: 20250421
  Transmission Date: 20250716
  Serious: Yes (Life-Threatening, Hospitalization, Other)
  Sender: AMGEN
  Company Number: HR-002147023-NVSC2025HR056701

PATIENT
  Sex: Female

DRUGS (11)
  1. AIMOVIG [Suspect]
     Active Substance: ERENUMAB-AOOE
     Indication: Migraine
     Dosage: 70 MG, Q4W
     Route: 058
     Dates: start: 20231128
  2. AIMOVIG [Suspect]
     Active Substance: ERENUMAB-AOOE
     Dosage: 140 MG, Q4W
     Route: 058
     Dates: start: 20240710, end: 20241101
  3. IBUPROFEN [Concomitant]
     Active Substance: IBUPROFEN
     Indication: Product used for unknown indication
     Route: 065
  4. DULOXETINE [Concomitant]
     Active Substance: DULOXETINE
     Indication: Product used for unknown indication
     Dosage: 30 MG, BID (1,0,1)
     Route: 065
  5. AZITHROMYCIN [Concomitant]
     Active Substance: AZITHROMYCIN
     Indication: Product used for unknown indication
     Route: 065
  6. AZITHROMYCIN [Concomitant]
     Active Substance: AZITHROMYCIN
     Route: 065
  7. ROSUVASTATIN [Concomitant]
     Active Substance: ROSUVASTATIN
     Indication: Product used for unknown indication
     Dosage: 10 MG, QD (0,0,1)
     Route: 065
  8. LEVOTHYROXINE [Concomitant]
     Active Substance: LEVOTHYROXINE
     Indication: Product used for unknown indication
     Route: 065
  9. LEVOTHYROXINE [Concomitant]
     Active Substance: LEVOTHYROXINE
     Route: 065
  10. METFORMIN [Concomitant]
     Active Substance: METFORMIN HYDROCHLORIDE
     Indication: Product used for unknown indication
     Dosage: 500 MG, QD (AFTER DINNER)
     Route: 065
  11. VITAMIN D [Concomitant]
     Active Substance: VITAMIN D NOS
     Indication: Product used for unknown indication
     Route: 065

REACTIONS (25)
  - Respiratory failure [Recovered/Resolved]
  - Coma [Recovered/Resolved]
  - Suicide attempt [Unknown]
  - Suicidal ideation [Unknown]
  - Pneumonia mycoplasmal [Unknown]
  - Presyncope [Unknown]
  - Carotid artery disease [Unknown]
  - Cerebral atrophy [Unknown]
  - Night sweats [Unknown]
  - Lymphadenopathy [Unknown]
  - Lymph node pain [Unknown]
  - Streptococcal infection [Unknown]
  - Hypoaesthesia oral [Unknown]
  - Amylase increased [Unknown]
  - Lipase increased [Unknown]
  - Headache [Unknown]
  - Fatigue [Unknown]
  - Vertigo [Unknown]
  - Neck pain [Unknown]
  - Myalgia [Unknown]
  - Hypoaesthesia [Unknown]
  - Cough [Unknown]
  - Thyroid disorder [Unknown]
  - Electroencephalogram abnormal [Unknown]
  - Dizziness [Unknown]

NARRATIVE: CASE EVENT DATE: 20240101
